FAERS Safety Report 10946080 (Version 2)
Quarter: 2015Q2

REPORT INFORMATION
  Report Type: Spontaneous
  Country: US (occurrence: US)
  Receive Date: 20150322
  Receipt Date: 20150526
  Transmission Date: 20150821
  Serious: Yes (Hospitalization)
  Sender: FDA-Public Use
  Company Number: US-JNJFOC-20150200988

PATIENT
  Age: 52 Year
  Sex: Male

DRUGS (5)
  1. ZYPREXA [Suspect]
     Active Substance: OLANZAPINE
     Indication: PRODUCT USED FOR UNKNOWN INDICATION
     Route: 048
     Dates: start: 20141211
  2. LORAZEPAM. [Suspect]
     Active Substance: LORAZEPAM
     Indication: ANXIETY
     Dosage: 2 AT NIGHT AND 1 IN THE MORNING
     Route: 048
     Dates: start: 201410, end: 20141211
  3. RISPERDAL CONSTA [Suspect]
     Active Substance: RISPERIDONE
     Indication: SCHIZOAFFECTIVE DISORDER
     Route: 030
     Dates: start: 201410, end: 20141211
  4. LITHIUM. [Suspect]
     Active Substance: LITHIUM
     Indication: BIPOLAR DISORDER
     Dosage: IN THE MORNING AND AT NIGHT
     Route: 048
     Dates: end: 20141211
  5. ZYPREXA [Suspect]
     Active Substance: OLANZAPINE
     Indication: PRODUCT USED FOR UNKNOWN INDICATION
     Route: 048
     Dates: start: 201410, end: 20141211

REACTIONS (5)
  - Nervousness [Unknown]
  - Incorrect dose administered [Recovered/Resolved]
  - Restlessness [Unknown]
  - Dyskinesia [Unknown]
  - Schizoaffective disorder [Not Recovered/Not Resolved]

NARRATIVE: CASE EVENT DATE: 201410
